FAERS Safety Report 18530841 (Version 2)
Quarter: 2020Q4

REPORT INFORMATION
  Report Type: Report from Study
  Country: US (occurrence: US)
  Receive Date: 20201121
  Receipt Date: 20201229
  Transmission Date: 20210114
  Serious: Yes (Other)
  Sender: FDA-Public Use
  Company Number: US-TAKEDA-2020TUS049907

PATIENT
  Age: 70 Year
  Sex: Female
  Weight: 67.9 kg

DRUGS (8)
  1. TEDUGLUTIDE [Suspect]
     Active Substance: TEDUGLUTIDE
     Indication: SHORT-BOWEL SYNDROME
     Dosage: UNK
     Route: 065
  2. FERRIC CARBOXYMALTOSE [Concomitant]
     Active Substance: FERRIC CARBOXYMALTOSE
     Dosage: 750 MILLIGRAM, QD
     Route: 042
     Dates: start: 20190709, end: 20190709
  3. ERTAPENEM. [Concomitant]
     Active Substance: ERTAPENEM SODIUM
     Indication: DEVICE RELATED INFECTION
     Dosage: 1 GRAM, QD
     Route: 042
     Dates: start: 20190930
  4. TEDUGLUTIDE [Suspect]
     Active Substance: TEDUGLUTIDE
     Indication: SHORT-BOWEL SYNDROME
     Dosage: UNK
     Route: 065
  5. FERRIC CARBOXYMALTOSE [Concomitant]
     Active Substance: FERRIC CARBOXYMALTOSE
     Indication: IRON DEFICIENCY ANAEMIA
     Dosage: 750 MILLIGRAM, QD
     Route: 042
     Dates: start: 20190702, end: 20190702
  6. TEDUGLUTIDE [Suspect]
     Active Substance: TEDUGLUTIDE
     Indication: SHORT-BOWEL SYNDROME
     Dosage: UNK
     Route: 065
  7. TEDUGLUTIDE [Suspect]
     Active Substance: TEDUGLUTIDE
     Indication: SHORT-BOWEL SYNDROME
     Dosage: UNK
     Route: 065
  8. ZOSYN [Concomitant]
     Active Substance: PIPERACILLIN SODIUM\TAZOBACTAM SODIUM
     Indication: DEVICE RELATED INFECTION
     Dosage: 4.5 GRAM, ONE DOSE
     Route: 042
     Dates: start: 20190928, end: 20190928

REACTIONS (1)
  - Non-Hodgkin^s lymphoma stage II [Recovering/Resolving]

NARRATIVE: CASE EVENT DATE: 20201002
